FAERS Safety Report 24148167 (Version 1)
Quarter: 2024Q3

REPORT INFORMATION
  Report Type: Spontaneous
  Country: US (occurrence: None)
  Receive Date: 20240728
  Receipt Date: 20240728
  Transmission Date: 20241016
  Serious: Yes (Other)
  Sender: Public
  Company Number: None

PATIENT
  Age: 28 Year
  Sex: Female
  Weight: 71.1 kg

DRUGS (9)
  1. TIRZEPATIDE [Suspect]
     Active Substance: TIRZEPATIDE
     Indication: Affective disorder
     Dosage: OTHER FREQUENCY : 1X WEEKLY;?OTHER ROUTE : INTO FAT ON STOMACH;?
     Route: 050
     Dates: start: 20240723
  2. TIRZEPATIDE [Suspect]
     Active Substance: TIRZEPATIDE
     Indication: Weight
  3. TIRZEPATIDE [Suspect]
     Active Substance: TIRZEPATIDE
     Indication: Weight
  4. TIRZEPATIDE [Suspect]
     Active Substance: TIRZEPATIDE
     Indication: Weight
  5. VIMPAT [Concomitant]
     Active Substance: LACOSAMIDE
  6. DOXYCYCLINE [Concomitant]
     Active Substance: DOXYCYCLINE\DOXYCYCLINE HYCLATE
  7. ARAZLO TOPICAL [Concomitant]
  8. METRODIZOL TOPICAL [Concomitant]
  9. CLINDAMYCIN TOPICAL [Concomitant]

REACTIONS (1)
  - Partial seizures [None]

NARRATIVE: CASE EVENT DATE: 20240728
